FAERS Safety Report 14380235 (Version 3)
Quarter: 2018Q1

REPORT INFORMATION
  Report Type: Report from Study
  Country: ES (occurrence: ES)
  Receive Date: 20180112
  Receipt Date: 20180220
  Transmission Date: 20180509
  Serious: Yes (Death, Hospitalization)
  Sender: FDA-Public Use
  Company Number: ES-PFIZER INC-2018012630

PATIENT
  Age: 48 Year
  Sex: Male
  Weight: 90 kg

DRUGS (2)
  1. SUNITINIB MALATE. [Suspect]
     Active Substance: SUNITINIB MALATE
     Indication: PANCREATIC NEUROENDOCRINE TUMOUR
     Dosage: 37.5 MG, DAILY
     Route: 048
     Dates: start: 20171030, end: 20171204
  2. TH-302 [Suspect]
     Active Substance: EVOFOSFAMIDE
     Indication: PANCREATIC NEUROENDOCRINE TUMOUR
     Dosage: 340 MG/M2, CYCLIC (C1 D8 / C1 D22 / C2 D8)
     Route: 042
     Dates: start: 20171106, end: 20171211

REACTIONS (2)
  - Asthenia [Not Recovered/Not Resolved]
  - Pancreatitis acute [Fatal]

NARRATIVE: CASE EVENT DATE: 20171220
